FAERS Safety Report 25419322 (Version 1)
Quarter: 2025Q2

REPORT INFORMATION
  Report Type: Spontaneous
  Country: CA (occurrence: CA)
  Receive Date: 20250610
  Receipt Date: 20250610
  Transmission Date: 20250716
  Serious: Yes (Death, Other)
  Sender: KYOWA
  Company Number: CA-KYOWAKIRIN-2025KK011032

PATIENT

DRUGS (1)
  1. POTELIGEO [Suspect]
     Active Substance: MOGAMULIZUMAB-KPKC
     Indication: Cutaneous T-cell lymphoma
     Dosage: 60 MG, 1X/2 WEEKS (SINGLEUSE VIAL)
     Route: 042

REACTIONS (2)
  - Cardiac arrest [Fatal]
  - Pulseless electrical activity [Fatal]
